FAERS Safety Report 17293049 (Version 1)
Quarter: 2020Q1

REPORT INFORMATION
  Report Type: Spontaneous
  Country: US (occurrence: US)
  Receive Date: 20200102
  Receipt Date: 20200102
  Transmission Date: 20200409
  Serious: No
  Sender: FDA-Public Use
  Company Number: None

PATIENT
  Age: 67 Year
  Sex: Female
  Weight: 60.78 kg

DRUGS (1)
  1. AJOVY [Suspect]
     Active Substance: FREMANEZUMAB-VFRM
     Indication: MIGRAINE
     Dosage: ?          OTHER DOSE:225MG/1.5ML;?
     Route: 058
     Dates: start: 20190722, end: 20191230

REACTIONS (1)
  - Injection site rash [None]

NARRATIVE: CASE EVENT DATE: 20191223
